FAERS Safety Report 4967240-4 (Version None)
Quarter: 2006Q2

REPORT INFORMATION
  Report Type: 
  Country: None (occurrence: None)
  Receive Date: 20060403
  Receipt Date: 20060118
  Transmission Date: 20061013
  Serious: Yes (Other)
  Sender: FDA-Public Use
  Company Number: 2006012109

PATIENT

DRUGS (1)
  1. DETROL [Suspect]
     Indication: ILL-DEFINED DISORDER

REACTIONS (2)
  - DRUG EFFECT DECREASED [None]
  - INTESTINAL OPERATION [None]
